FAERS Safety Report 7742415-X (Version None)
Quarter: 2011Q3

REPORT INFORMATION
  Report Type: 
  Country: None (occurrence: None)
  Receive Date: 20110907
  Receipt Date: 20110907
  Transmission Date: 20111222
  Serious: Yes (Life-Threatening, Hospitalization)
  Sender: FDA-Public Use
  Company Number: None

PATIENT
  Sex: Male
  Weight: 5.9 kg

DRUGS (1)
  1. FENTANYL [Suspect]
     Indication: CATARACT CONGENITAL
     Dosage: 5 MCG IV X1 X1 IV
     Route: 042
     Dates: start: 20110831

REACTIONS (2)
  - RESPIRATORY RATE DECREASED [None]
  - SOMNOLENCE [None]
